FAERS Safety Report 7217937-0 (Version None)
Quarter: 2011Q1

REPORT INFORMATION
  Report Type: 
  Country: None (occurrence: None)
  Receive Date: 20110110
  Receipt Date: 20101222
  Transmission Date: 20110831
  Serious: Yes (Hospitalization, Congenital Anomaly)
  Sender: FDA-Public Use
  Company Number: A0785724A

PATIENT
  Sex: Male
  Weight: 0.7 kg

DRUGS (6)
  1. LOVENOX [Concomitant]
     Dosage: 60MG PER DAY
     Route: 048
  2. FERROUS SULFATE [Concomitant]
  3. PAXIL [Suspect]
     Indication: DEPRESSION
     Dosage: 20MG PER DAY
     Dates: start: 20040519, end: 20051111
  4. PRENATAL VITAMINS [Concomitant]
  5. ZOLOFT [Concomitant]
     Indication: DEPRESSION
  6. FOLIC ACID [Concomitant]

REACTIONS (4)
  - VENTRICULAR SEPTAL DEFECT [None]
  - DRUG EXPOSURE DURING PREGNANCY [None]
  - PERSISTENT FOETAL CIRCULATION [None]
  - BRONCHOPULMONARY DYSPLASIA [None]
